FAERS Safety Report 8077486-7 (Version None)
Quarter: 2012Q1

REPORT INFORMATION
  Report Type: 
  Country: None (occurrence: None)
  Receive Date: 20120127
  Receipt Date: 20120120
  Transmission Date: 20120608
  Serious: Yes (Hospitalization, Other)
  Sender: FDA-Public Use
  Company Number: SE-ABBOTT-12P-150-0892691-00

PATIENT
  Sex: Male

DRUGS (5)
  1. HUMIRA [Suspect]
     Indication: CROHN'S DISEASE
     Route: 058
     Dates: start: 20080101, end: 20111208
  2. LOPERAMIDE HCL [Concomitant]
     Indication: PRODUCT USED FOR UNKNOWN INDICATION
  3. HYDROXOCOBALAMINE [Concomitant]
     Indication: PRODUCT USED FOR UNKNOWN INDICATION
     Route: 030
  4. TEGRETOL [Concomitant]
     Indication: EPILEPSY
  5. KEPPRA [Concomitant]
     Indication: EPILEPSY

REACTIONS (3)
  - GLIOBLASTOMA MULTIFORME [None]
  - EPILEPSY [None]
  - PARTIAL SEIZURES [None]
